FAERS Safety Report 23703290 (Version 1)
Quarter: 2024Q2

REPORT INFORMATION
  Report Type: Spontaneous
  Country: US (occurrence: None)
  Receive Date: 20240403
  Receipt Date: 20240403
  Transmission Date: 20240716
  Serious: No
  Sender: FDA-Public Use
  Company Number: None

PATIENT
  Age: 59 Year
  Sex: Male

DRUGS (1)
  1. TESTOPEL [Suspect]
     Active Substance: TESTOSTERONE
     Indication: Testicular failure
     Dosage: OTHER QUANTITY : IMPLANT 8 PELLETS;?OTHER FREQUENCY : EVERYY 6 MONTHS;?
     Route: 058
     Dates: start: 20200925

REACTIONS (2)
  - Ligament sprain [None]
  - Trigger finger [None]

NARRATIVE: CASE EVENT DATE: 20240401
